FAERS Safety Report 4506227-2 (Version None)
Quarter: 2004Q4

REPORT INFORMATION
  Report Type: 
  Country: None (occurrence: None)
  Receive Date: 20041119
  Receipt Date: 20041013
  Transmission Date: 20050328
  Serious: Yes (Life-Threatening, Hospitalization, Disabling, Other)
  Sender: FDA-Public Use
  Company Number: US-MERCK-0410USA02109

PATIENT
  Age: 67 Year
  Sex: Male
  Weight: 117 kg

DRUGS (13)
  1. VIOXX [Suspect]
     Indication: OSTEOARTHRITIS
     Route: 048
     Dates: end: 20040809
  2. GLUCOPHAGE [Concomitant]
     Route: 065
  3. ZOCOR [Concomitant]
     Route: 048
  4. FLOMAX [Concomitant]
     Route: 065
  5. ASPIRIN [Concomitant]
     Route: 065
  6. TRUSOPT [Concomitant]
     Route: 065
  7. VICODIN [Concomitant]
     Route: 048
  8. METOPROLOL [Concomitant]
     Route: 048
  9. MONOPRIL [Concomitant]
     Route: 065
  10. MAXZIDE [Concomitant]
     Route: 065
  11. ALBUTEROL [Concomitant]
     Route: 065
  12. PLENDIL [Concomitant]
     Route: 065
  13. NITROGLYCERIN [Concomitant]
     Route: 065

REACTIONS (9)
  - ANAEMIA [None]
  - CHEST PAIN [None]
  - DIVERTICULUM GASTRIC [None]
  - DIVERTICULUM INTESTINAL [None]
  - FATIGUE [None]
  - GASTRIC HAEMORRHAGE [None]
  - LARGE INTESTINAL ULCER [None]
  - OESOPHAGEAL ULCER [None]
  - RECTAL HAEMORRHAGE [None]
